FAERS Safety Report 8045361-X (Version None)
Quarter: 2012Q1

REPORT INFORMATION
  Report Type: 
  Country: None (occurrence: None)
  Receive Date: 20120113
  Receipt Date: 20120106
  Transmission Date: 20120608
  Serious: Yes (Hospitalization)
  Sender: FDA-Public Use
  Company Number: US-BAYER-2011-075006

PATIENT
  Age: 34 Year
  Sex: Female
  Weight: 61.3 kg

DRUGS (8)
  1. TOPIRAMATE [Concomitant]
     Indication: MIGRAINE
     Dosage: 25 MG, BID
     Route: 048
  2. PROPRANOLOL [Concomitant]
  3. HERBALIFE PRODUCTS [Concomitant]
  4. MULTI-VITAMIN [Concomitant]
  5. ZITHROMAX [Concomitant]
  6. YAZ [Suspect]
     Dosage: UNK
     Dates: start: 20050101, end: 20090101
  7. YASMIN [Suspect]
     Dosage: UNK
     Dates: start: 20050101, end: 20090101
  8. ZOMIG [Concomitant]
     Indication: MIGRAINE
     Dosage: UNK
     Dates: start: 20010101

REACTIONS (6)
  - SEPSIS [None]
  - HEART INJURY [None]
  - INJURY [None]
  - RENAL FAILURE [None]
  - MULTI-ORGAN FAILURE [None]
  - PAIN [None]
